FAERS Safety Report 15010925 (Version 1)
Quarter: 2018Q2

REPORT INFORMATION
  Report Type: Spontaneous
  Country: US (occurrence: US)
  Receive Date: 20180529
  Receipt Date: 20180529
  Transmission Date: 20180711
  Serious: Yes (Other)
  Sender: FDA-Public Use
  Company Number: None

PATIENT
  Age: 32 Year
  Sex: Male
  Weight: 63 kg

DRUGS (2)
  1. IBUPROFIN [Concomitant]
     Active Substance: IBUPROFEN
  2. TRAZODONE [Suspect]
     Active Substance: TRAZODONE HYDROCHLORIDE
     Indication: SLEEP DISORDER
     Route: 048
     Dates: start: 20160224, end: 20180403

REACTIONS (1)
  - Anxiety [None]

NARRATIVE: CASE EVENT DATE: 20160608
